FAERS Safety Report 9138011 (Version 1)
Quarter: 2013Q1

REPORT INFORMATION
  Report Type: Spontaneous
  Country: US (occurrence: US)
  Receive Date: 20130304
  Receipt Date: 20130304
  Transmission Date: 20140127
  Serious: No
  Sender: FDA-Public Use
  Company Number: US-ABBOTT-13P-163-1046641-00

PATIENT
  Sex: Female

DRUGS (3)
  1. ANDROGEL [Suspect]
     Indication: PRODUCT USED FOR UNKNOWN INDICATION
     Dosage: SKIN CONTACT EXPOSURE
     Route: 062
  2. PROZAC [Concomitant]
     Indication: PRODUCT USED FOR UNKNOWN INDICATION
     Route: 048
  3. MEMORY SUPPLEMENT [Concomitant]
     Indication: MEMORY IMPAIRMENT
     Route: 048

REACTIONS (5)
  - Unevaluable event [Recovering/Resolving]
  - Accidental exposure to product [Recovering/Resolving]
  - Hot flush [Recovering/Resolving]
  - Alopecia [Recovering/Resolving]
  - Insomnia [Recovering/Resolving]
